FAERS Safety Report 17888612 (Version 1)
Quarter: 2020Q2

REPORT INFORMATION
  Report Type: Spontaneous
  Country: US (occurrence: US)
  Receive Date: 20200612
  Receipt Date: 20200612
  Transmission Date: 20200714
  Serious: No
  Sender: FDA-Public Use
  Company Number: US-BAUSCH-BL-2020-016691

PATIENT
  Sex: Male

DRUGS (7)
  1. LACTULOSE. [Suspect]
     Active Substance: LACTULOSE
     Indication: HEPATIC CANCER
  2. XIFAXAN [Suspect]
     Active Substance: RIFAXIMIN
     Indication: HEPATITIS C
  3. LACTULOSE. [Suspect]
     Active Substance: LACTULOSE
     Indication: HEPATITIS C
  4. LACTULOSE. [Suspect]
     Active Substance: LACTULOSE
     Indication: HEPATIC ENCEPHALOPATHY
     Route: 065
  5. XIFAXAN [Suspect]
     Active Substance: RIFAXIMIN
     Indication: HEPATIC ENCEPHALOPATHY
     Route: 065
  6. XIFAXAN [Suspect]
     Active Substance: RIFAXIMIN
     Indication: HEPATIC CANCER
     Route: 065
     Dates: start: 20200606
  7. LENVIMA [Concomitant]
     Active Substance: LENVATINIB
     Indication: HEPATIC CANCER

REACTIONS (4)
  - Therapy interrupted [Unknown]
  - Insurance issue [Unknown]
  - Ammonia increased [Unknown]
  - Inability to afford medication [Unknown]
